FAERS Safety Report 24703643 (Version 2)
Quarter: 2025Q4

REPORT INFORMATION
  Report Type: Spontaneous
  Country: EU (occurrence: EU)
  Receive Date: 20241206
  Receipt Date: 20251218
  Transmission Date: 20260117
  Serious: Yes (Other)
  Sender: ALKEM
  Company Number: None

PATIENT
  Age: 6 Year
  Sex: Female

DRUGS (21)
  1. MYCOPHENOLATE MOFETIL [Suspect]
     Active Substance: MYCOPHENOLATE MOFETIL
     Indication: Prophylaxis against graft versus host disease
     Dosage: 15 MILLIGRAM/KILOGRAM, TID ( EVERY 0.33 DAY )
     Route: 065
  2. MYCOPHENOLATE MOFETIL [Suspect]
     Active Substance: MYCOPHENOLATE MOFETIL
     Indication: Prophylaxis against transplant rejection
     Dosage: 45 MILLIGRAM/KILOGRAM, TID ( EVERY 0.33 DAY )
     Route: 065
  3. TACROLIMUS [Suspect]
     Active Substance: TACROLIMUS
     Indication: Prophylaxis against graft versus host disease
     Dosage: UNK
     Route: 065
  4. TACROLIMUS [Suspect]
     Active Substance: TACROLIMUS
     Indication: Prophylaxis against transplant rejection
  5. ALEMTUZUMAB [Suspect]
     Active Substance: ALEMTUZUMAB
     Indication: Sickle cell disease
     Dosage: 0.2 MILLIGRAM/KILOGRAM, QD (CONCENTRATE FOR SOLUTION FOR INFUSION)
     Route: 065
  6. ALEMTUZUMAB [Suspect]
     Active Substance: ALEMTUZUMAB
     Indication: Bone marrow conditioning regimen
     Dosage: 0.4 MILLIGRAM/KILOGRAM
     Route: 065
  7. ALEMTUZUMAB [Suspect]
     Active Substance: ALEMTUZUMAB
     Indication: Prophylaxis against transplant rejection
  8. CYCLOPHOSPHAMIDE [Suspect]
     Active Substance: CYCLOPHOSPHAMIDE
     Indication: Sickle cell disease
     Dosage: UNK
     Route: 065
  9. CYCLOPHOSPHAMIDE [Suspect]
     Active Substance: CYCLOPHOSPHAMIDE
     Indication: Bone marrow conditioning regimen
     Dosage: 50 MILLIGRAM/KILOGRAM, QD
     Route: 065
  10. CYCLOPHOSPHAMIDE [Suspect]
     Active Substance: CYCLOPHOSPHAMIDE
     Indication: Prophylaxis against graft versus host disease
     Dosage: 14.5 MILLIGRAM/KILOGRAM, QD
     Route: 065
  11. CYCLOPHOSPHAMIDE [Suspect]
     Active Substance: CYCLOPHOSPHAMIDE
     Indication: Prophylaxis against transplant rejection
     Dosage: 29 MILLIGRAM/KILOGRAM, QD (EVERY 1 DAY)
     Route: 065
  12. FLUDARABINE PHOSPHATE [Suspect]
     Active Substance: FLUDARABINE PHOSPHATE
     Indication: Sickle cell disease
     Dosage: 30 MILLIGRAM/SQ. METER, QD
     Route: 065
  13. FLUDARABINE PHOSPHATE [Suspect]
     Active Substance: FLUDARABINE PHOSPHATE
     Indication: Bone marrow conditioning regimen
     Dosage: 150 MILLIGRAM/SQ. METER, QD (EVERY 1 DAY)
     Route: 065
  14. FLUDARABINE PHOSPHATE [Suspect]
     Active Substance: FLUDARABINE PHOSPHATE
     Indication: Prophylaxis against transplant rejection
  15. LENOGRASTIM [Suspect]
     Active Substance: LENOGRASTIM
     Indication: Prophylaxis against graft versus host disease
     Dosage: 5 MICROGRAM/KILOGRAM, QD (POWDER AND SOLVENT FOR SOLUTION FOR INJECTION)
     Route: 065
  16. THIOTEPA [Suspect]
     Active Substance: THIOTEPA
     Indication: Sickle cell disease
     Dosage: 5 MILLIGRAM/KILOGRAM, BID
     Route: 065
  17. THIOTEPA [Suspect]
     Active Substance: THIOTEPA
     Indication: Bone marrow conditioning regimen
     Dosage: 10 MILLIGRAM/KILOGRAM, BID
     Route: 065
  18. THIOTEPA [Suspect]
     Active Substance: THIOTEPA
     Indication: Prophylaxis against transplant rejection
  19. TREOSULFAN [Suspect]
     Active Substance: TREOSULFAN
     Indication: Sickle cell disease
     Dosage: 14 GRAM PER SQUARE METRE, QD
     Route: 065
  20. TREOSULFAN [Suspect]
     Active Substance: TREOSULFAN
     Indication: Bone marrow conditioning regimen
     Dosage: 42000 MILLIGRAM/SQ. METER, QD (EVERY 1 DAY)
     Route: 065
  21. TREOSULFAN [Suspect]
     Active Substance: TREOSULFAN
     Indication: Prophylaxis against transplant rejection

REACTIONS (6)
  - Pseudomonas infection [Unknown]
  - Cytomegalovirus infection reactivation [Unknown]
  - Staphylococcal infection [Unknown]
  - Parotitis [Unknown]
  - Haematological infection [Unknown]
  - Off label use [Unknown]
